FAERS Safety Report 8175868-6 (Version None)
Quarter: 2012Q1

REPORT INFORMATION
  Report Type: 
  Country: None (occurrence: None)
  Receive Date: 20120228
  Receipt Date: 20120216
  Transmission Date: 20120608
  Serious: Yes (Other)
  Sender: FDA-Public Use
  Company Number: 2012SP009461

PATIENT
  Age: 43 Year
  Sex: Female

DRUGS (1)
  1. NORCURON [Suspect]
     Indication: GENERAL ANAESTHESIA
     Dosage: IV
     Route: 042
     Dates: start: 19910101, end: 19910101

REACTIONS (1)
  - ANAPHYLACTIC SHOCK [None]
